FAERS Safety Report 15313640 (Version 2)
Quarter: 2018Q3

REPORT INFORMATION
  Report Type: Report from Study
  Country: None (occurrence: CO)
  Receive Date: 20180824
  Receipt Date: 20180927
  Transmission Date: 20181010
  Serious: Yes (Hospitalization, Other)
  Sender: FDA-Public Use
  Company Number: CO-ABBVIE-18K-036-2461384-00

PATIENT
  Age: 67 Year
  Sex: Male

DRUGS (1)
  1. HUMIRA [Suspect]
     Active Substance: ADALIMUMAB
     Indication: CROHN^S DISEASE
     Route: 058
     Dates: start: 20170110, end: 20180716

REACTIONS (4)
  - Nephrolithiasis [Recovering/Resolving]
  - Chest pain [Recovering/Resolving]
  - Infarction [Recovering/Resolving]
  - Post procedural haematuria [Recovered/Resolved]

NARRATIVE: CASE EVENT DATE: 2018
